FAERS Safety Report 22302680 (Version 4)
Quarter: 2023Q4

REPORT INFORMATION
  Report Type: Spontaneous
  Country: CA (occurrence: CA)
  Receive Date: 20230510
  Receipt Date: 20231121
  Transmission Date: 20240110
  Serious: Yes (Hospitalization, Other)
  Sender: FDA-Public Use
  Company Number: CA-CELLTRION INC.-2023CA008137

PATIENT

DRUGS (8)
  1. INFLECTRA [Suspect]
     Active Substance: INFLIXIMAB-DYYB
     Indication: Colitis ulcerative
     Dosage: 10 MG/KG, W 0, 2, 6 WEEKS THEN EVERY 8 WEEKS, ROUND TO NEAREST VIAL
     Route: 042
     Dates: start: 20230417
  2. INFLECTRA [Suspect]
     Active Substance: INFLIXIMAB-DYYB
     Dosage: 10 MG/KG, 10 MG/KG, W 0, 2, 6 WEEKS THEN EVERY 8 WEEKS, ROUND TO NEAREST VIAL
     Route: 042
     Dates: start: 20230417
  3. INFLECTRA [Suspect]
     Active Substance: INFLIXIMAB-DYYB
     Dosage: 10 MG/KG, W 0, 2, 6 WEEKS THEN EVERY 8 WEEKS, ROUND TO NEAREST VIAL
     Route: 042
     Dates: start: 20230504
  4. INFLECTRA [Suspect]
     Active Substance: INFLIXIMAB-DYYB
     Dosage: 1000MG, AFTER 4 WEEKS (W6)
     Route: 042
     Dates: start: 20230529
  5. INFLECTRA [Suspect]
     Active Substance: INFLIXIMAB-DYYB
     Dosage: 1000MG, AFTER 4 WEEKS (W6)
     Route: 042
     Dates: start: 20230724
  6. INFLECTRA [Suspect]
     Active Substance: INFLIXIMAB-DYYB
     Dosage: 1000MG, AFTER 4 WEEKS (W6)
     Route: 042
     Dates: start: 20230921
  7. INFLECTRA [Suspect]
     Active Substance: INFLIXIMAB-DYYB
     Dosage: 1000MG, AFTER 4 WEEKS (W6), 1000MG (10MG/KG ROUNDED DOWN TO THE NEXT HUNDREDTH), 8 WEEKS
     Route: 042
     Dates: start: 20231113
  8. CORTISONE [Concomitant]
     Active Substance: CORTISONE
     Dosage: UNK

REACTIONS (10)
  - Abdominal pain [Recovered/Resolved]
  - Abdominal rigidity [Recovered/Resolved]
  - Hepatic enzyme increased [Recovered/Resolved]
  - Erythema [Recovered/Resolved]
  - Pruritus [Recovered/Resolved]
  - Chest pain [Recovered/Resolved]
  - Flatulence [Recovering/Resolving]
  - Condition aggravated [Not Recovered/Not Resolved]
  - Off label use [Unknown]
  - Off label use [Unknown]

NARRATIVE: CASE EVENT DATE: 20230401
